FAERS Safety Report 18500651 (Version 4)
Quarter: 2021Q1

REPORT INFORMATION
  Report Type: Report from Study
  Country: US (occurrence: US)
  Receive Date: 20201113
  Receipt Date: 20210319
  Transmission Date: 20210419
  Serious: No
  Sender: FDA-Public Use
  Company Number: NVSC2020US300132

PATIENT
  Age: 69 Year
  Sex: Female

DRUGS (1)
  1. ENTRESTO [Suspect]
     Active Substance: SACUBITRIL\VALSARTAN
     Indication: PRODUCT USED FOR UNKNOWN INDICATION
     Dosage: UNK, BID
     Route: 048
     Dates: start: 201906

REACTIONS (14)
  - Nasopharyngitis [Unknown]
  - Dizziness [Unknown]
  - Wrong technique in product usage process [Unknown]
  - Fall [Unknown]
  - Insomnia [Unknown]
  - Hypotension [Unknown]
  - Pulmonary function test abnormal [Unknown]
  - Bronchitis [Unknown]
  - Influenza [Recovering/Resolving]
  - Nausea [Unknown]
  - Dyspnoea [Unknown]
  - Rhinorrhoea [Unknown]
  - Fatigue [Unknown]
  - Rib fracture [Unknown]

NARRATIVE: CASE EVENT DATE: 20210208
